FAERS Safety Report 6021692-X (Version None)
Quarter: 2008Q4

REPORT INFORMATION
  Report Type: 
  Country: None (occurrence: None)
  Receive Date: 20081229
  Receipt Date: 20081216
  Transmission Date: 20090506
  Serious: Yes (Other)
  Sender: FDA-Public Use
  Company Number: PHHO2008US13885

PATIENT
  Sex: Female
  Weight: 56.8 kg

DRUGS (5)
  1. BLINDED NO TREATMENT RECEIVED NOMED [Suspect]
     Indication: METASTASES TO BONE
     Dosage: 4 MG
     Route: 042
     Dates: start: 20080610, end: 20081110
  2. BLINDED PLACEBO COMP-PLA+ [Suspect]
     Indication: METASTASES TO BONE
     Dosage: 4 MG
     Route: 042
     Dates: start: 20080610, end: 20081110
  3. BLINDED ZOLEDRONATE T29581+SOLINJ+BM [Suspect]
     Indication: METASTASES TO BONE
     Dosage: 4 MG
     Route: 042
     Dates: start: 20080610, end: 20081110
  4. VITAMIN D [Concomitant]
  5. CALCIUM [Concomitant]

REACTIONS (2)
  - BONE DISORDER [None]
  - IMPAIRED HEALING [None]
